FAERS Safety Report 7609355-8 (Version None)
Quarter: 2011Q3

REPORT INFORMATION
  Report Type: 
  Country: None (occurrence: None)
  Receive Date: 20110714
  Receipt Date: 20110706
  Transmission Date: 20111222
  Serious: Yes (Other)
  Sender: FDA-Public Use
  Company Number: PHHY2011US57682

PATIENT
  Sex: Female
  Weight: 72.562 kg

DRUGS (2)
  1. PREVACID [Concomitant]
     Dosage: UNK UKN, UNK
  2. GILENYA [Suspect]
     Indication: MULTIPLE SCLEROSIS
     Dosage: 0.5 MG, QD
     Route: 048
     Dates: start: 20110613

REACTIONS (8)
  - MOUTH ULCERATION [None]
  - DYSPHAGIA [None]
  - HEADACHE [None]
  - NAUSEA [None]
  - DIZZINESS [None]
  - POLLAKIURIA [None]
  - DIARRHOEA [None]
  - COLD SWEAT [None]
